FAERS Safety Report 5329145-9 (Version None)
Quarter: 2007Q2

REPORT INFORMATION
  Report Type: 
  Country: None (occurrence: None)
  Receive Date: 20070518
  Receipt Date: 20070507
  Transmission Date: 20071010
  Serious: Yes (Other)
  Sender: FDA-Public Use
  Company Number: CA-PFIZER INC-2007015843

PATIENT
  Sex: Female
  Weight: 103 kg

DRUGS (23)
  1. XALATAN [Suspect]
     Indication: INTRAOCULAR PRESSURE INCREASED
     Route: 047
  2. LISINOPRIL [Concomitant]
     Indication: BLOOD PRESSURE
  3. ATENOLOL [Concomitant]
     Indication: TACHYCARDIA
     Dosage: DAILY DOSE:50MG
  4. PANTOPRAZOLE SODIUM [Concomitant]
     Dosage: DAILY DOSE:40MG
  5. ZOCOR [Concomitant]
     Indication: BLOOD CHOLESTEROL
  6. METFORMIN HCL [Concomitant]
  7. ATARAX [Concomitant]
     Indication: HYPERSENSITIVITY
  8. PAXIL [Concomitant]
     Indication: DEPRESSION
  9. SYNTHROID [Concomitant]
     Indication: HYPOTHYROIDISM
  10. PERCOCET [Concomitant]
     Indication: PAIN
  11. SALBUTAMOL [Concomitant]
     Indication: ASTHMA
  12. PULMICORT [Concomitant]
     Indication: ASTHMA
  13. DOMPERIDONE [Concomitant]
     Indication: GASTROOESOPHAGEAL REFLUX DISEASE
  14. NAPHAZOLINE HYDROCHLORIDE [Concomitant]
     Route: 047
  15. ACTOS [Concomitant]
  16. ALPHAGAN [Concomitant]
  17. OMEGA 3-6-9 [Concomitant]
  18. VITAMINS [Concomitant]
  19. FIBRE, DIETARY [Concomitant]
     Indication: DIVERTICULUM
  20. HYDRA-ZIDE [Concomitant]
     Indication: FLUID RETENTION
     Dosage: DAILY DOSE:25MG
  21. CRESTOR [Concomitant]
     Indication: BLOOD CHOLESTEROL
  22. ACETYLSALICYLIC ACID SRT [Concomitant]
  23. HUMULIN R [Concomitant]

REACTIONS (3)
  - BALANCE DISORDER [None]
  - DIZZINESS [None]
  - HYPOTENSION [None]
